FAERS Safety Report 5232675-1 (Version None)
Quarter: 2007Q1

REPORT INFORMATION
  Report Type: 
  Country: None (occurrence: None)
  Receive Date: 20070206
  Receipt Date: 20070206
  Transmission Date: 20070707
  Serious: No
  Sender: FDA-Public Use
  Company Number: None

PATIENT
  Sex: Male
  Weight: 83.9154 kg

DRUGS (2)
  1. CIPROFLOXACIN 500 MG TAB GENERIC [Suspect]
     Indication: EPIDIDYMITIS
     Dosage: 2/DAY FOR 10 DAYS PO
     Route: 048
     Dates: start: 20050930, end: 20051009
  2. PREDNISONE 10 MG TAB GENERIC [Suspect]
     Indication: DERMATITIS CONTACT
     Dosage: 3/DAY FOR 12 DAYS PO
     Route: 048
     Dates: start: 20050930, end: 20051011

REACTIONS (5)
  - ARTHRALGIA [None]
  - FALL [None]
  - GROIN PAIN [None]
  - TENDON PAIN [None]
  - URINARY RETENTION [None]
